FAERS Safety Report 16464843 (Version 1)
Quarter: 2019Q2

REPORT INFORMATION
  Report Type: Spontaneous
  Country: US (occurrence: US)
  Receive Date: 20190621
  Receipt Date: 20190621
  Transmission Date: 20190711
  Serious: No
  Sender: FDA-Public Use
  Company Number: US-BAYER-2019-118936

PATIENT
  Age: 52 Year
  Sex: Male
  Weight: 93 kg

DRUGS (1)
  1. MIRALAX [Suspect]
     Active Substance: POLYETHYLENE GLYCOL 3350
     Indication: GASTROINTESTINAL DISORDER
     Dosage: UNK (ONCE OR TWICE A DAY ON SOME DAYS DOSE)
     Route: 048
     Dates: start: 20190610, end: 20190619

REACTIONS (3)
  - Drug ineffective [Unknown]
  - Incorrect product administration duration [None]
  - Product use issue [None]

NARRATIVE: CASE EVENT DATE: 20190610
